FAERS Safety Report 12982247 (Version 1)
Quarter: 2016Q4

REPORT INFORMATION
  Report Type: Spontaneous
  Country: US (occurrence: US)
  Receive Date: 20161128
  Receipt Date: 20161128
  Transmission Date: 20170207
  Serious: Yes (Disabling)
  Sender: FDA-Public Use
  Company Number: None

PATIENT
  Age: 26 Year
  Sex: Male
  Weight: 72 kg

DRUGS (5)
  1. VIBERZI [Concomitant]
     Active Substance: ELUXADOLINE
  2. PROPECIA [Suspect]
     Active Substance: FINASTERIDE
     Indication: ALOPECIA
     Dosage: ?          QUANTITY:360 TABLET(S);?
     Route: 048
  3. VIAGRA [Concomitant]
     Active Substance: SILDENAFIL CITRATE
  4. CLONAZEPAM. [Concomitant]
     Active Substance: CLONAZEPAM
  5. TRINTELLIX [Concomitant]
     Active Substance: VORTIOXETINE HYDROBROMIDE

REACTIONS (6)
  - Libido decreased [None]
  - Depression [None]
  - Anxiety [None]
  - Erectile dysfunction [None]
  - Disturbance in attention [None]
  - Prostatitis [None]

NARRATIVE: CASE EVENT DATE: 20060101
